FAERS Safety Report 13269517 (Version 1)
Quarter: 2017Q1

REPORT INFORMATION
  Report Type: Spontaneous
  Country: SI (occurrence: SI)
  Receive Date: 20170224
  Receipt Date: 20170224
  Transmission Date: 20170428
  Serious: Yes (Hospitalization, Other)
  Sender: FDA-Public Use
  Company Number: SI-BAYER-2017-023981

PATIENT
  Age: 58 Year
  Sex: Male

DRUGS (3)
  1. ASPIRIN PROTECT 100 MG [Suspect]
     Active Substance: ASPIRIN
  2. AMLOPIN [Concomitant]
     Active Substance: AMLODIPINE BESYLATE
     Dosage: 5 MG, UNK
  3. ATORVASTATIN [Concomitant]
     Active Substance: ATORVASTATIN
     Dosage: 10 MG, UNK

REACTIONS (2)
  - Speech disorder [Recovering/Resolving]
  - Hemiparesis [Recovering/Resolving]
